FAERS Safety Report 6190583-6 (Version None)
Quarter: 2009Q2

REPORT INFORMATION
  Report Type: 
  Country: None (occurrence: None)
  Receive Date: 20090514
  Receipt Date: 20090127
  Transmission Date: 20091009
  Serious: Yes (Other)
  Sender: FDA-Public Use
  Company Number: US-BRISTOL-MYERS SQUIBB COMPANY-14485148

PATIENT
  Age: 51 Year
  Sex: Female

DRUGS (5)
  1. IXEMPRA KIT [Suspect]
     Indication: BREAST CANCER METASTATIC
     Dates: start: 20080121, end: 20080121
  2. TAGAMET [Concomitant]
     Indication: PREMEDICATION
     Dosage: TAGAMET IV
     Route: 042
  3. BENADRYL [Concomitant]
     Indication: PREMEDICATION
  4. ANZEMET [Concomitant]
     Indication: PREMEDICATION
  5. XELODA [Concomitant]

REACTIONS (6)
  - DIARRHOEA [None]
  - NAUSEA [None]
  - NEUTROPHIL COUNT DECREASED [None]
  - PYREXIA [None]
  - VOMITING [None]
  - WHITE BLOOD CELL COUNT DECREASED [None]
